FAERS Safety Report 13121946 (Version 1)
Quarter: 2017Q1

REPORT INFORMATION
  Report Type: Spontaneous
  Country: US (occurrence: US)
  Receive Date: 20170116
  Receipt Date: 20170116
  Transmission Date: 20170428
  Serious: Yes (Other)
  Sender: FDA-Public Use
  Company Number: None

PATIENT
  Age: 38 Year
  Sex: Male
  Weight: 79.1 kg

DRUGS (1)
  1. REMICADE [Suspect]
     Active Substance: INFLIXIMAB
     Indication: CROHN^S DISEASE
     Dosage: 330 MG EVERY 8 WEEKS  INTRAVENOUS?
     Route: 042
     Dates: start: 20151206, end: 20170111

REACTIONS (6)
  - Cough [None]
  - Erythema [None]
  - Lip swelling [None]
  - Infusion related reaction [None]
  - Pigmentation disorder [None]
  - Anaphylactic reaction [None]

NARRATIVE: CASE EVENT DATE: 20170111
